FAERS Safety Report 6524516-7 (Version None)
Quarter: 2010Q1

REPORT INFORMATION
  Report Type: 
  Country: None (occurrence: None)
  Receive Date: 20100104
  Receipt Date: 20091222
  Transmission Date: 20100710
  Serious: Yes (Hospitalization)
  Sender: FDA-Public Use
  Company Number: FR-BRISTOL-MYERS SQUIBB COMPANY-14913776

PATIENT
  Age: 86 Year
  Sex: Male

DRUGS (1)
  1. FOSINOPRIL SODIUM AND HYDROCHLOROTHIAZIDE [Suspect]

REACTIONS (2)
  - BRADYCARDIA [None]
  - HYPERKALAEMIA [None]
